FAERS Safety Report 19723187 (Version 1)
Quarter: 2021Q3

REPORT INFORMATION
  Report Type: Spontaneous
  Country: US (occurrence: US)
  Receive Date: 20210820
  Receipt Date: 20210820
  Transmission Date: 20211014
  Serious: No
  Sender: FDA-Public Use
  Company Number: US-AMGEN-USASP2021125929

PATIENT
  Sex: Female

DRUGS (1)
  1. REPATHA [Suspect]
     Active Substance: EVOLOCUMAB
     Indication: BLOOD CHOLESTEROL
     Dosage: 140 MILLIGRAM, Q2WK
     Route: 065
     Dates: start: 202101

REACTIONS (4)
  - Muscle spasms [Unknown]
  - Chondropathy [Unknown]
  - Wrong technique in product usage process [Unknown]
  - Ligament pain [Unknown]

NARRATIVE: CASE EVENT DATE: 20210810
